FAERS Safety Report 11596643 (Version 1)
Quarter: 2015Q4

REPORT INFORMATION
  Report Type: Spontaneous
  Country: AR (occurrence: AR)
  Receive Date: 20151006
  Receipt Date: 20151006
  Transmission Date: 20160304
  Serious: Yes (Other)
  Sender: FDA-Public Use
  Company Number: AR-FRESENIUS KABI-FK201504713

PATIENT

DRUGS (5)
  1. PREDNISOLONE (MANUFACTURER UNKNOWN) [Suspect]
     Active Substance: PREDNISOLONE
     Indication: PRODUCT USED FOR UNKNOWN INDICATION
     Route: 064
  2. HYDROXYCHLOROQUINE [Suspect]
     Active Substance: HYDROXYCHLOROQUINE
     Indication: PRODUCT USED FOR UNKNOWN INDICATION
     Route: 064
  3. MYCOPHENOLATE [Suspect]
     Active Substance: MYCOPHENOLIC ACID
     Indication: PRODUCT USED FOR UNKNOWN INDICATION
     Route: 064
  4. CALCIUM (MANUFACTURER UNKNOWN) [Suspect]
     Active Substance: CALCIUM
     Indication: PRODUCT USED FOR UNKNOWN INDICATION
     Route: 064
  5. AZATHIOPRINE. [Suspect]
     Active Substance: AZATHIOPRINE
     Indication: PRODUCT USED FOR UNKNOWN INDICATION
     Route: 064

REACTIONS (15)
  - Microtia [Unknown]
  - Spinal disorder [Unknown]
  - Hypertelorism of orbit [Unknown]
  - Iris coloboma [Unknown]
  - Patent ductus arteriosus [Unknown]
  - Exposure during pregnancy [Unknown]
  - Cleft lip and palate [Unknown]
  - Retinal coloboma [Unknown]
  - Choroidal coloboma [Unknown]
  - Oesophageal atresia [Unknown]
  - Maternal drugs affecting foetus [None]
  - Ear disorder [Unknown]
  - Off label use [Unknown]
  - Low birth weight baby [None]
  - Anotia [None]
